FAERS Safety Report 15359678 (Version 1)
Quarter: 2018Q4

REPORT INFORMATION
  Report Type: Spontaneous
  Country: US (occurrence: US)
  Receive Date: 20180907
  Receipt Date: 20180907
  Transmission Date: 20190204
  Serious: No
  Sender: FDA-Public Use
  Company Number: US-ALK-ABELLO A/S-2018AA002655

PATIENT

DRUGS (7)
  1. TAE BULK 358 (RUMEX ACETOSELLA) [Suspect]
     Active Substance: RUMEX ACETOSELLA POLLEN
     Indication: PRODUCT USED FOR UNKNOWN INDICATION
  2. TAE BULK 364 XANTHIUM COMMUNE [Suspect]
     Active Substance: XANTHIUM STRUMARIUM POLLEN
     Indication: PRODUCT USED FOR UNKNOWN INDICATION
  3. TAE BULK 1173 (QUERCUS RUBRA) [Suspect]
     Active Substance: QUERCUS RUBRA POLLEN
     Indication: PRODUCT USED FOR UNKNOWN INDICATION
  4. STAE BULK 555 (FELIS DOMESTICUS) [Suspect]
     Active Substance: FELIS CATUS HAIR
     Indication: PRODUCT USED FOR UNKNOWN INDICATION
  5. TAE BULK 553 [Suspect]
     Active Substance: ALLERGENIC EXTRACTS
     Indication: PRODUCT USED FOR UNKNOWN INDICATION
  6. TAE BULK 1318 (AMBROSIA ARTEMISIIFOLIA\305 AMBROSIA TRIFIDA) [Suspect]
     Active Substance: AMBROSIA ARTEMISIIFOLIA POLLEN\AMBROSIA TRIFIDA POLLEN
     Indication: PRODUCT USED FOR UNKNOWN INDICATION
  7. TAE BULK 1144 (CARYA OVATA POLLEN) [Suspect]
     Active Substance: CARYA OVATA POLLEN
     Indication: PRODUCT USED FOR UNKNOWN INDICATION

REACTIONS (1)
  - Expired product administered [Unknown]
